FAERS Safety Report 5034232-9 (Version None)
Quarter: 2006Q2

REPORT INFORMATION
  Report Type: 
  Country: None (occurrence: None)
  Receive Date: 20060626
  Receipt Date: 20060424
  Transmission Date: 20061013
  Serious: Yes (Hospitalization)
  Sender: FDA-Public Use
  Company Number: PHHO2006JP06689

PATIENT
  Age: 54 Year
  Sex: Male
  Weight: 82 kg

DRUGS (3)
  1. DIOVAN [Suspect]
     Indication: HYPERTENSION
     Dosage: 80 MG, QD
     Route: 048
     Dates: start: 20021109, end: 20051012
  2. STARSIS [Concomitant]
     Indication: DIABETES MELLITUS
     Dosage: 270 MG, UNK
     Route: 048
     Dates: start: 20041004, end: 20051012
  3. BEZATOL - SLOW RELEASE [Concomitant]
     Indication: HYPERLIPIDAEMIA
     Dosage: 400 MG, UNK
     Route: 048
     Dates: start: 20041228, end: 20051011

REACTIONS (1)
  - PANCREATITIS [None]
